FAERS Safety Report 25626418 (Version 1)
Quarter: 2025Q3

REPORT INFORMATION
  Report Type: Spontaneous
  Country: US (occurrence: US)
  Receive Date: 20250731
  Receipt Date: 20250731
  Transmission Date: 20251020
  Serious: Yes (Other)
  Sender: RANBAXY
  Company Number: US-SUN PHARMACEUTICAL INDUSTRIES INC-2025R1-519787

PATIENT
  Age: 18 Year
  Sex: Male

DRUGS (3)
  1. DOXYCYCLINE [Suspect]
     Active Substance: DOXYCYCLINE
     Indication: Sinusitis
     Route: 065
     Dates: start: 202406
  2. PREDNISONE [Suspect]
     Active Substance: PREDNISONE
     Indication: Sinusitis
     Route: 065
     Dates: start: 202406
  3. AUGMENTIN [Suspect]
     Active Substance: AMOXICILLIN\CLAVULANATE POTASSIUM
     Indication: Sinusitis
     Route: 065
     Dates: start: 2024

REACTIONS (2)
  - Drug ineffective [Unknown]
  - Selective IgA immunodeficiency [Unknown]
